FAERS Safety Report 5884161-3 (Version None)
Quarter: 2008Q3

REPORT INFORMATION
  Report Type: 
  Country: None (occurrence: None)
  Receive Date: 20080911
  Receipt Date: 20080903
  Transmission Date: 20090109
  Serious: Yes (Other)
  Sender: FDA-Public Use
  Company Number: SPV1-2008-01889

PATIENT
  Sex: Female

DRUGS (1)
  1. LIALDA [Suspect]
     Indication: PROCTITIS ULCERATIVE

REACTIONS (2)
  - HEPATITIS ACUTE [None]
  - OFF LABEL USE [None]
